FAERS Safety Report 17854868 (Version 17)
Quarter: 2023Q1

REPORT INFORMATION
  Report Type: Spontaneous
  Country: US (occurrence: US)
  Receive Date: 20200603
  Receipt Date: 20230315
  Transmission Date: 20230417
  Serious: No
  Sender: FDA-Public Use
  Company Number: US-PFIZER INC-2020215330

PATIENT
  Age: 72 Year
  Sex: Female
  Weight: 58.97 kg

DRUGS (12)
  1. PREMPRO [Suspect]
     Active Substance: ESTROGENS, CONJUGATED\MEDROXYPROGESTERONE ACETATE
     Indication: Bone density abnormal
     Dosage: UNK, 1X/DAY (0.45MG/1.5MG; HALF OF A TABLET, BY MOUTH, ONCE IN THE MORNING)
     Route: 048
     Dates: start: 2001
  2. PREMPRO [Suspect]
     Active Substance: ESTROGENS, CONJUGATED\MEDROXYPROGESTERONE ACETATE
     Indication: Menopause
     Dosage: 0.5 DF (1/2 TAB), DAILY
  3. PREMPRO [Suspect]
     Active Substance: ESTROGENS, CONJUGATED\MEDROXYPROGESTERONE ACETATE
     Dosage: 0.5 DF, 1X/DAY (0.45MG/1.6MG, TAKES 1/2 BY MOUTH EVERY MORNING)
     Route: 048
  4. PREMPRO [Suspect]
     Active Substance: ESTROGENS, CONJUGATED\MEDROXYPROGESTERONE ACETATE
     Dosage: UNK, DAILY(0.45-1 MG DAILY)
  5. PREMPRO [Suspect]
     Active Substance: ESTROGENS, CONJUGATED\MEDROXYPROGESTERONE ACETATE
     Dosage: ONLY TAKES 1/2 OF A PILL (0.45 MG/ 1.5 MG)
     Dates: start: 2015
  6. PREMPRO [Suspect]
     Active Substance: ESTROGENS, CONJUGATED\MEDROXYPROGESTERONE ACETATE
     Dosage: 0.5 DF (ONLY TAKES A HALF OF A PILL OF PREMPRO)
  7. OLMESARTAN MEDOXOMIL [Concomitant]
     Active Substance: OLMESARTAN MEDOXOMIL
     Indication: Hypertension
     Dosage: 20 MG, DAILY (20MG BY MOUTH DAILY)
     Route: 048
     Dates: start: 2000
  8. ATORVASTATIN [Concomitant]
     Active Substance: ATORVASTATIN
     Indication: Blood cholesterol abnormal
     Dosage: 20 MG, 1X/DAY [20MG, TABLET, BY MOUTH, ONCE DAILY,20MG BY MOUTH AT BEDTIME]
     Route: 048
     Dates: start: 2010
  9. ATOMOXETINE [Concomitant]
     Active Substance: ATOMOXETINE
     Indication: Attention deficit hyperactivity disorder
     Dosage: 60 MG, DAILY
     Dates: start: 2004, end: 20200605
  10. ASPIRIN [Concomitant]
     Active Substance: ASPIRIN
     Dosage: 81 MG, (IN THE MORNING)
  11. MODERNA COVID-19 VACCINE [Concomitant]
     Active Substance: ELASOMERAN
     Dosage: DOSE 1, SINGLE
  12. MODERNA COVID-19 VACCINE [Concomitant]
     Active Substance: ELASOMERAN
     Dosage: DOSE 2, SINGLE
     Dates: start: 20210323, end: 20210323

REACTIONS (12)
  - Therapeutic response unexpected [Not Recovered/Not Resolved]
  - Depression [Unknown]
  - Emotional disorder [Unknown]
  - Feeling abnormal [Unknown]
  - Thinking abnormal [Unknown]
  - Crying [Unknown]
  - Dysphemia [Unknown]
  - Blood pressure increased [Unknown]
  - Headache [Unknown]
  - Product prescribing error [Unknown]
  - Intentional product misuse [Unknown]
  - Underdose [Unknown]

NARRATIVE: CASE EVENT DATE: 20150101
